FAERS Safety Report 9173431 (Version 1)
Quarter: 2013Q1

REPORT INFORMATION
  Report Type: Spontaneous
  Country: US (occurrence: None)
  Receive Date: 20130318
  Receipt Date: 20130318
  Transmission Date: 20140127
  Serious: Yes (Other)
  Sender: FDA-Public Use
  Company Number: None

PATIENT
  Age: 50 Year
  Sex: Female
  Weight: 68.04 kg

DRUGS (5)
  1. ZITHROMAX [Suspect]
     Indication: SINUSITIS
     Dates: start: 20130306, end: 20130310
  2. ZITHROMAX [Suspect]
     Indication: BRONCHITIS
     Dates: start: 20130306, end: 20130310
  3. ZITHROMAX [Suspect]
     Indication: COSTOCHONDRITIS
     Dates: start: 20130306, end: 20130310
  4. AZITHROMYCIN [Concomitant]
  5. ZITHROMAX [Concomitant]

REACTIONS (2)
  - Heart rate increased [None]
  - Hypertension [None]
